FAERS Safety Report 7629916-X (Version None)
Quarter: 2011Q3

REPORT INFORMATION
  Report Type: 
  Country: None (occurrence: None)
  Receive Date: 20110715
  Receipt Date: 20110707
  Transmission Date: 20111222
  Serious: Yes (Other)
  Sender: FDA-Public Use
  Company Number: 2011SP031617

PATIENT
  Age: 69 Year
  Sex: Female

DRUGS (2)
  1. INTERFERON ALFA-2B RECOMBINANT (INTERFERON ALFA-2B) [Suspect]
     Indication: HEPATITIS VIRAL
  2. RIBAVIRIN [Suspect]
     Indication: HEPATITIS VIRAL

REACTIONS (2)
  - DEMYELINATION [None]
  - DECREASED APPETITE [None]
